FAERS Safety Report 7860758-6 (Version None)
Quarter: 2011Q4

REPORT INFORMATION
  Report Type: 
  Country: None (occurrence: None)
  Receive Date: 20111027
  Receipt Date: 20111019
  Transmission Date: 20120403
  Serious: Yes (Other)
  Sender: FDA-Public Use
  Company Number: RU-ASTRAZENECA-2011SE63042

PATIENT
  Sex: Female

DRUGS (1)
  1. EMLA [Suspect]
     Indication: ANAESTHESIA
     Dosage: UNK
     Route: 061
     Dates: start: 20070101

REACTIONS (2)
  - PHOTOPHOBIA [None]
  - KERATITIS [None]
